FAERS Safety Report 21212509 (Version 1)
Quarter: 2022Q3

REPORT INFORMATION
  Report Type: Spontaneous
  Country: US (occurrence: None)
  Receive Date: 20220812
  Receipt Date: 20220812
  Transmission Date: 20221026
  Serious: Yes (Hospitalization, Other)
  Sender: FDA-Public Use
  Company Number: None

PATIENT
  Age: 47 Year
  Weight: 81 kg

DRUGS (1)
  1. REXULTI [Suspect]
     Active Substance: BREXPIPRAZOLE
     Indication: Anxiety
     Dosage: OTHER QUANTITY : 1 TABLET(S);?
     Dates: start: 20210401, end: 20220225

REACTIONS (4)
  - Nausea [None]
  - Seizure [None]
  - Bedridden [None]
  - Withdrawal syndrome [None]

NARRATIVE: CASE EVENT DATE: 20211127
